FAERS Safety Report 13328727 (Version 1)
Quarter: 2017Q1

REPORT INFORMATION
  Report Type: Spontaneous
  Country: US (occurrence: US)
  Receive Date: 20170310
  Receipt Date: 20170310
  Transmission Date: 20170428
  Serious: No
  Sender: FDA-Public Use
  Company Number: None

PATIENT
  Age: 10 Year
  Sex: Female
  Weight: 30.15 kg

DRUGS (2)
  1. LACTATED RINGERS [Suspect]
     Active Substance: CALCIUM CHLORIDE\POTASSIUM CHLORIDE\SODIUM CHLORIDE\SODIUM LACTATE
     Indication: PREOPERATIVE CARE
     Dosage: ?          QUANTITY:1 IV BAG;OTHER FREQUENCY:ONCE;?
     Route: 042
  2. QUILLIVANT XR [Concomitant]
     Active Substance: METHYLPHENIDATE HYDROCHLORIDE

REACTIONS (8)
  - Drug ineffective [None]
  - Moaning [None]
  - Speech disorder [None]
  - Infusion related reaction [None]
  - Malaise [None]
  - Nausea [None]
  - Drooling [None]
  - Asthenia [None]

NARRATIVE: CASE EVENT DATE: 20170310
